FAERS Safety Report 9163682 (Version 2)
Quarter: 2013Q2

REPORT INFORMATION
  Report Type: Spontaneous
  Country: BE (occurrence: BE)
  Receive Date: 20130314
  Receipt Date: 20130529
  Transmission Date: 20140414
  Serious: Yes (Hospitalization, Other)
  Sender: FDA-Public Use
  Company Number: BE-ELI_LILLY_AND_COMPANY-BE201303002919

PATIENT
  Sex: Female

DRUGS (9)
  1. ALIMTA [Suspect]
     Indication: NON-SMALL CELL LUNG CANCER
     Dosage: UNK
     Route: 042
     Dates: start: 201208
  2. ALIMTA [Suspect]
     Dosage: UNK
     Route: 042
     Dates: start: 20130103
  3. ALIMTA [Suspect]
     Dosage: UNK
     Route: 042
     Dates: start: 20130123
  4. ALIMTA [Suspect]
     Dosage: UNK
     Route: 042
     Dates: start: 20130212
  5. CISPLATIN [Concomitant]
     Dosage: UNK
  6. PANTOMED                           /01263204/ [Concomitant]
  7. ADALAT [Concomitant]
  8. FOLAVIT [Concomitant]
  9. VITAMIN B12 [Concomitant]

REACTIONS (2)
  - Renal disorder [Recovering/Resolving]
  - Pancytopenia [Recovered/Resolved]
